FAERS Safety Report 13290398 (Version 2)
Quarter: 2017Q2

REPORT INFORMATION
  Report Type: Spontaneous
  Country: IE (occurrence: IE)
  Receive Date: 20170302
  Receipt Date: 20170420
  Transmission Date: 20170830
  Serious: Yes (Other)
  Sender: FDA-Public Use
  Company Number: IE-PFIZER INC-2017008568

PATIENT
  Sex: Female

DRUGS (2)
  1. CABERGOLINE. [Suspect]
     Active Substance: CABERGOLINE
     Indication: ACROMEGALY
     Dosage: 1 MG, 2X/WEEK
  2. SOMATOSTATIN [Concomitant]
     Active Substance: SOMATOSTATIN
     Dosage: 40 MG, MONTHLY

REACTIONS (3)
  - Dizziness [Unknown]
  - Adenoma benign [Unknown]
  - Product use in unapproved indication [Unknown]
